FAERS Safety Report 9890443 (Version 1)
Quarter: 2014Q1

REPORT INFORMATION
  Report Type: Spontaneous
  Country: US (occurrence: None)
  Receive Date: 20140210
  Receipt Date: 20140210
  Transmission Date: 20141002
  Serious: Yes (Other)
  Sender: FDA-Public Use
  Company Number: None

PATIENT
  Age: 34 Year
  Sex: Female
  Weight: 125.19 kg

DRUGS (1)
  1. SYNTHROID 125 MCG [Suspect]
     Indication: HYPOTHYROIDISM
     Dosage: LIFETIME

REACTIONS (4)
  - Palpitations [None]
  - Oedema [None]
  - Alopecia [None]
  - Product substitution issue [None]
